FAERS Safety Report 8238559-9 (Version None)
Quarter: 2012Q1

REPORT INFORMATION
  Report Type: 
  Country: None (occurrence: None)
  Receive Date: 20120327
  Receipt Date: 20120316
  Transmission Date: 20120608
  Serious: Yes (Other)
  Sender: FDA-Public Use
  Company Number: MX-BRISTOL-MYERS SQUIBB COMPANY-16464281

PATIENT
  Age: 74 Year
  Sex: Female
  Weight: 140 kg

DRUGS (3)
  1. LANTUS [Suspect]
     Indication: TYPE 2 DIABETES MELLITUS
     Route: 058
  2. IRBESARTAN AND HYDROCHLOROTHIAZIDE [Suspect]
     Indication: HYPERTENSION
     Dosage: 1 TABS/ 24HRS, 1 TABS/12HRS RESTARTED:01JAN2012.
     Route: 048
     Dates: end: 20120101
  3. HUMALOG [Concomitant]
     Indication: TYPE 2 DIABETES MELLITUS
     Dosage: 45 IU/A DAY(15 IU IN THE MORNING IN THE AFTERNOON AND 15 IU AT NIGHT).
     Route: 058

REACTIONS (4)
  - HYPERTENSION [None]
  - INFLAMMATION [None]
  - THROMBOSIS [None]
  - CHEST PAIN [None]
